FAERS Safety Report 4924769-2 (Version None)
Quarter: 2006Q1

REPORT INFORMATION
  Report Type: 
  Country: None (occurrence: None)
  Receive Date: 20060222
  Receipt Date: 20060207
  Transmission Date: 20060701
  Serious: Yes (Other)
  Sender: FDA-Public Use
  Company Number: 2006BH002535

PATIENT
  Age: 45 Year
  Sex: Female
  Weight: 110 kg

DRUGS (1)
  1. HEPARIN SODIUM [Suspect]
     Indication: DEEP VEIN THROMBOSIS

REACTIONS (2)
  - HEPARIN-INDUCED THROMBOCYTOPENIA [None]
  - PULMONARY EMBOLISM [None]
